FAERS Safety Report 11660083 (Version 2)
Quarter: 2015Q4

REPORT INFORMATION
  Report Type: Report from Study
  Country: DE (occurrence: DE)
  Receive Date: 20151026
  Receipt Date: 20151119
  Transmission Date: 20160304
  Serious: Yes (Death, Hospitalization, Other)
  Sender: FDA-Public Use
  Company Number: DE-ASTELLAS-2015US027031

PATIENT
  Age: 76 Year
  Sex: Male

DRUGS (12)
  1. LEVOFLOXACIN. [Concomitant]
     Active Substance: LEVOFLOXACIN
     Indication: URINARY TRACT INFECTION
     Dosage: 250 MG, (TOTAL DAILY DOSE), UNKNOWN FREQ.
     Route: 048
     Dates: start: 20150716, end: 20150720
  2. CALCIMAGON                         /00751501/ [Concomitant]
     Active Substance: CALCIUM CARBONATE
     Indication: PROSTATE CANCER
     Dosage: 600 MG/400 IE, (TOTAL DAILY DOSE), UNKNOWN FREQ.
     Route: 048
     Dates: start: 20141103
  3. IBUPROFEN. [Concomitant]
     Active Substance: IBUPROFEN
     Indication: PAIN
     Dosage: 1600 MG, (TOTAL DAILY DOSE), UNKNOWN FREQ.
     Route: 048
     Dates: start: 201501
  4. ENZALUTAMIDE [Suspect]
     Active Substance: ENZALUTAMIDE
     Indication: HORMONE-REFRACTORY PROSTATE CANCER
     Route: 048
     Dates: start: 20150713, end: 20150808
  5. NOVAMINSULFON [Concomitant]
     Active Substance: METAMIZOLE
     Indication: PAIN
     Dosage: 1600 MG, (TOTAL DAILY DOSE), UNKNOWN FREQ.
     Route: 048
     Dates: start: 201501
  6. NOVAMINSULFON [Concomitant]
     Active Substance: METAMIZOLE
     Indication: PAIN
     Dosage: 1 G, (TOTAL DAILY DOSE), UNKNOWN FREQ.
     Route: 042
     Dates: start: 20150716, end: 20150716
  7. XGEVA [Concomitant]
     Active Substance: DENOSUMAB
     Indication: PROSTATE CANCER
     Dosage: 120 MG, (TOTAL DAILY DOSE), UNKNOWN FREQ.
     Route: 058
     Dates: start: 20141103
  8. PANTOPRAZOL [Concomitant]
     Active Substance: PANTOPRAZOLE SODIUM
     Indication: PROPHYLAXIS AGAINST GASTROINTESTINAL ULCER
     Dosage: 20 MG, (TOTAL DAILY DOSE), UNKNOWN FREQ.
     Route: 048
     Dates: start: 201501
  9. MOVICOL [Concomitant]
     Active Substance: POLYETHYLENE GLYCOL 3350\POTASSIUM CHLORIDE\SODIUM BICARBONATE\SODIUM CHLORIDE
     Indication: CONSTIPATION
     Dosage: 13.81 MG, (TOTAL DAILY DOSE), UNKNOWN FREQ.
     Route: 048
     Dates: start: 201501
  10. HYDROMORPHONE [Concomitant]
     Active Substance: HYDROMORPHONE
     Indication: PAIN
     Dosage: 32 MG, (TOTAL DAILY DOSE), UNKNOWN FREQ.
     Route: 048
     Dates: start: 20150716
  11. ABSTRAL [Concomitant]
     Active Substance: FENTANYL CITRATE
     Indication: PAIN
     Dosage: 300 ?G, (TOTAL DAILY DOSE), UNKNOWN FREQ.
     Route: 048
     Dates: start: 20150716
  12. PAMORELIN [Concomitant]
     Active Substance: TRIPTORELIN PAMOATE
     Indication: PRODUCT USED FOR UNKNOWN INDICATION
     Dosage: 11.25 MG, Q3M
     Route: 058
     Dates: start: 20141103

REACTIONS (3)
  - Pleural effusion [Not Recovered/Not Resolved]
  - Dyspnoea [Not Recovered/Not Resolved]
  - Malignant neoplasm progression [Fatal]

NARRATIVE: CASE EVENT DATE: 20150725
